FAERS Safety Report 4886150-4 (Version None)
Quarter: 2006Q1

REPORT INFORMATION
  Report Type: 
  Country: None (occurrence: None)
  Receive Date: 20060120
  Receipt Date: 20060118
  Transmission Date: 20060701
  Serious: Yes (Hospitalization)
  Sender: FDA-Public Use
  Company Number: US-GLAXOSMITHKLINE-A0589890A

PATIENT
  Age: 74 Year
  Sex: Female

DRUGS (4)
  1. TAGAMET [Suspect]
     Indication: GASTRIC ULCER
     Route: 048
  2. GLYBURIDE [Concomitant]
  3. THORAZINE [Concomitant]
  4. KLONOPIN [Concomitant]

REACTIONS (1)
  - DYSTONIA [None]
